FAERS Safety Report 9650832 (Version 1)
Quarter: 2013Q4

REPORT INFORMATION
  Report Type: Spontaneous
  Country: FR (occurrence: FR)
  Receive Date: 20131029
  Receipt Date: 20131029
  Transmission Date: 20140711
  Serious: Yes (Death)
  Sender: FDA-Public Use
  Company Number: FR-JNJFOC-20131013897

PATIENT
  Age: 72 Year
  Sex: Male

DRUGS (8)
  1. HALDOL DECANOAS [Suspect]
     Indication: PRODUCT USED FOR UNKNOWN INDICATION
     Route: 030
     Dates: end: 20090710
  2. METFORMIN [Suspect]
     Indication: TYPE 2 DIABETES MELLITUS
     Route: 048
     Dates: end: 20090713
  3. TAHOR [Suspect]
     Indication: PRODUCT USED FOR UNKNOWN INDICATION
     Route: 048
     Dates: end: 20090713
  4. HYZAAR [Concomitant]
     Route: 065
  5. LASIX [Concomitant]
     Route: 065
  6. GLUCOR [Concomitant]
     Route: 065
  7. ARTANE [Concomitant]
     Route: 065
  8. IMOVANE [Concomitant]
     Route: 065

REACTIONS (3)
  - Lactic acidosis [Fatal]
  - Rhabdomyolysis [Fatal]
  - Renal failure acute [Fatal]
